FAERS Safety Report 10014481 (Version 1)
Quarter: 2014Q1

REPORT INFORMATION
  Report Type: Spontaneous
  Country: US (occurrence: US)
  Receive Date: 20140317
  Receipt Date: 20140317
  Transmission Date: 20141002
  Serious: No
  Sender: FDA-Public Use
  Company Number: US-BAYER-2014-039069

PATIENT
  Age: 80 Year
  Sex: Male

DRUGS (1)
  1. STAXYN (FDT/ODT) [Suspect]

REACTIONS (1)
  - Back pain [None]
